FAERS Safety Report 9965033 (Version 1)
Quarter: 2014Q1

REPORT INFORMATION
  Report Type: Report from Study
  Country: US (occurrence: US)
  Receive Date: 20140305
  Receipt Date: 20140305
  Transmission Date: 20141002
  Serious: No
  Sender: FDA-Public Use
  Company Number: US-ABBVIE-13P-163-1128881-00

PATIENT
  Age: 34 Year
  Sex: Female

DRUGS (4)
  1. HUMIRA [Suspect]
     Indication: CROHN^S DISEASE
     Route: 058
     Dates: start: 20130716, end: 20130716
  2. HUMIRA [Suspect]
     Route: 058
     Dates: start: 20130730
  3. LISINOPRIL/HCTZ [Concomitant]
     Indication: HYPERTENSION
     Dosage: 20 MG/12.5 MG DAILY
     Route: 048
  4. NEURONTIN [Concomitant]
     Indication: PAIN
     Dosage: 300 MG AT NOC
     Route: 048

REACTIONS (1)
  - Injection site pain [Recovered/Resolved]
